FAERS Safety Report 17471791 (Version 1)
Quarter: 2020Q1

REPORT INFORMATION
  Report Type: Spontaneous
  Country: FR (occurrence: FR)
  Receive Date: 20200228
  Receipt Date: 20200228
  Transmission Date: 20200409
  Serious: Yes (Death)
  Sender: FDA-Public Use
  Company Number: FR-TEVA-2020-FR-1191658

PATIENT
  Age: 53 Year
  Sex: Male

DRUGS (6)
  1. ALCOOL [Suspect]
     Active Substance: ALCOHOL
     Indication: ALCOHOL USE
     Dosage: UNINFORMED
     Route: 065
  2. CODEINE [Suspect]
     Active Substance: CODEINE
     Indication: PRODUCT USED FOR UNKNOWN INDICATION
     Dosage: UNINFORMED
     Route: 065
  3. VENLAFAXINE [Suspect]
     Active Substance: VENLAFAXINE HYDROCHLORIDE
     Indication: PRODUCT USED FOR UNKNOWN INDICATION
     Dosage: UNINFORMED
     Route: 065
     Dates: end: 201906
  4. ZOPICLONE [Suspect]
     Active Substance: ZOPICLONE
     Indication: PRODUCT USED FOR UNKNOWN INDICATION
     Dosage: UNINFORMED
     Route: 065
  5. MORPHINE [Suspect]
     Active Substance: MORPHINE
     Indication: PRODUCT USED FOR UNKNOWN INDICATION
     Dosage: UNINFORMED
     Route: 065
  6. METHADONE AP-HP [Suspect]
     Active Substance: METHADONE HYDROCHLORIDE
     Indication: PRODUCT USED FOR UNKNOWN INDICATION
     Dosage: UNINFORMED
     Route: 065
     Dates: end: 201906

REACTIONS (2)
  - Drug abuse [Fatal]
  - Respiratory depression [Fatal]

NARRATIVE: CASE EVENT DATE: 201906
